FAERS Safety Report 8854333 (Version 2)
Quarter: 2012Q4

REPORT INFORMATION
  Report Type: 
  Country: US (occurrence: US)
  Receive Date: 20121023
  Receipt Date: 20121107
  Transmission Date: 20130627
  Serious: Yes (Other)
  Sender: FDA-Public Use
  Company Number: US-PERRIGO-12US008546

PATIENT
  Age: 72 Year
  Sex: Female
  Weight: 63.49 kg

DRUGS (1)
  1. LORATADINE 10 MG 612 [Suspect]
     Indication: SEASONAL ALLERGY
     Dosage: 10 mg, single
     Route: 048
     Dates: start: 20120925, end: 20120925

REACTIONS (1)
  - Vision blurred [Recovering/Resolving]
